FAERS Safety Report 23715615 (Version 1)
Quarter: 2024Q2

REPORT INFORMATION
  Report Type: Spontaneous
  Country: US (occurrence: None)
  Receive Date: 20240408
  Receipt Date: 20240408
  Transmission Date: 20240716
  Serious: No
  Sender: FDA-Public Use
  Company Number: US-Umedica-000018

PATIENT
  Age: 68 Year
  Sex: Male

DRUGS (2)
  1. ROSUVASTATIN CALCIUM [Suspect]
     Active Substance: ROSUVASTATIN CALCIUM
     Indication: Low density lipoprotein increased
     Dosage: ROUND, LIGHT PINK WITH 1180 ON IT. TOOK ONCE OR TWICE A WEEK
     Route: 048
     Dates: start: 20231018, end: 20240119
  2. ALEVE [Concomitant]
     Active Substance: NAPROXEN SODIUM
     Indication: Antiinflammatory therapy
     Dosage: ONCE OR TWICE A WEEK

REACTIONS (9)
  - Myalgia [Not Recovered/Not Resolved]
  - Muscular weakness [Recovering/Resolving]
  - Arthralgia [Not Recovered/Not Resolved]
  - Muscle spasms [Unknown]
  - Asthenia [Unknown]
  - Product use issue [Unknown]
  - Gait disturbance [Unknown]
  - Pain in extremity [Not Recovered/Not Resolved]
  - Foot fracture [Unknown]

NARRATIVE: CASE EVENT DATE: 20231018
